FAERS Safety Report 20377640 (Version 1)
Quarter: 2022Q1

REPORT INFORMATION
  Report Type: Spontaneous
  Country: US (occurrence: US)
  Receive Date: 20220126
  Receipt Date: 20220126
  Transmission Date: 20220423
  Serious: No
  Sender: FDA-Public Use
  Company Number: US-ALLERGAN-2124592US

PATIENT
  Age: 14 Year
  Sex: Female

DRUGS (1)
  1. UBRELVY [Suspect]
     Active Substance: UBROGEPANT
     Indication: Migraine
     Dosage: ACTUAL: 50MG UP TO MAXIM 200MG PER DAY
     Dates: start: 202105

REACTIONS (1)
  - Off label use [Unknown]
